FAERS Safety Report 6848092-4 (Version None)
Quarter: 2010Q3

REPORT INFORMATION
  Report Type: 
  Country: None (occurrence: None)
  Receive Date: 20100716
  Receipt Date: 20100624
  Transmission Date: 20110219
  Serious: Yes (Hospitalization)
  Sender: FDA-Public Use
  Company Number: A0857140A

PATIENT
  Age: 71 Year
  Sex: Female
  Weight: 145 kg

DRUGS (9)
  1. AVANDIA [Suspect]
     Indication: DIABETES MELLITUS
     Dosage: 2MG PER DAY
     Route: 048
     Dates: start: 20060901, end: 20080926
  2. ASPIRIN [Concomitant]
     Dosage: 325MG PER DAY
  3. LANTUS [Concomitant]
  4. LIPITOR [Concomitant]
  5. PAXIL [Concomitant]
  6. PREVACID [Concomitant]
  7. TOPROL-XL [Concomitant]
  8. DIOVAN [Concomitant]
  9. HUMALOG [Concomitant]

REACTIONS (6)
  - CARDIAC FAILURE CONGESTIVE [None]
  - CARDIO-RESPIRATORY ARREST [None]
  - MYOCARDIAL INFARCTION [None]
  - OSTEOMYELITIS [None]
  - PULMONARY ARTERIAL PRESSURE INCREASED [None]
  - STAPHYLOCOCCAL INFECTION [None]
